FAERS Safety Report 4353714-6 (Version None)
Quarter: 2004Q2

REPORT INFORMATION
  Report Type: 
  Country: None (occurrence: None)
  Receive Date: 20040505
  Receipt Date: 20040422
  Transmission Date: 20050107
  Serious: Yes (Hospitalization)
  Sender: FDA-Public Use
  Company Number: PANC00304001150

PATIENT
  Age: 65 Year
  Sex: Male
  Weight: 46 kg

DRUGS (2)
  1. CREON [Suspect]
     Indication: PANCREATIC CARCINOMA
     Dosage: 3 G DAILY PO
     Route: 048
     Dates: start: 19970918, end: 19980916
  2. NOVOPEN (INSULIN HUMAN) [Concomitant]

REACTIONS (4)
  - ABDOMINAL PAIN [None]
  - BLOOD ALKALINE PHOSPHATASE INCREASED [None]
  - GAMMA-GLUTAMYLTRANSFERASE INCREASED [None]
  - ILEUS [None]
